FAERS Safety Report 23046949 (Version 2)
Quarter: 2023Q4

REPORT INFORMATION
  Report Type: Spontaneous
  Country: US (occurrence: US)
  Receive Date: 20231009
  Receipt Date: 20231013
  Transmission Date: 20240110
  Serious: Yes (Hospitalization, Other)
  Sender: FDA-Public Use
  Company Number: US-TEVA-2023-US-2932518

PATIENT
  Age: 76 Year
  Sex: Male

DRUGS (5)
  1. LORAZEPAM [Suspect]
     Active Substance: LORAZEPAM
     Indication: Middle insomnia
     Dosage: FOR 12 YEARS (SINCE 2011)
     Route: 065
  2. LORAZEPAM [Suspect]
     Active Substance: LORAZEPAM
     Indication: Nocturia
     Route: 065
  3. LORAZEPAM [Suspect]
     Active Substance: LORAZEPAM
     Indication: Middle insomnia
     Route: 065
  4. LORAZEPAM [Suspect]
     Active Substance: LORAZEPAM
     Indication: Nocturia
  5. LORAZEPAM [Suspect]
     Active Substance: LORAZEPAM
     Indication: Product used for unknown indication
     Route: 065

REACTIONS (17)
  - Macular degeneration [Unknown]
  - Hospitalisation [Unknown]
  - Abdominal discomfort [Unknown]
  - Abdominal pain upper [Unknown]
  - Headache [Unknown]
  - Lactose intolerance [Unknown]
  - Visual impairment [Unknown]
  - Gastrointestinal disorder [Unknown]
  - Poor quality sleep [Unknown]
  - Drug ineffective for unapproved indication [Unknown]
  - Wrong technique in product usage process [Unknown]
  - Product use in unapproved indication [Unknown]
  - Product prescribing issue [Unknown]
  - Product prescribing error [Unknown]
  - Product supply issue [Unknown]
  - Adverse drug reaction [Unknown]
  - Adverse event [Unknown]

NARRATIVE: CASE EVENT DATE: 20110101
